FAERS Safety Report 25734327 (Version 1)
Quarter: 2025Q3

REPORT INFORMATION
  Report Type: Spontaneous
  Country: AU (occurrence: AU)
  Receive Date: 20250828
  Receipt Date: 20250828
  Transmission Date: 20251020
  Serious: Yes (Other)
  Sender: ACCORD
  Company Number: None

PATIENT
  Age: 77 Year
  Sex: Male

DRUGS (3)
  1. ZOLEDRONIC ACID [Suspect]
     Active Substance: ZOLEDRONIC ACID
     Indication: Product used for unknown indication
  2. ENOXAPARIN SODIUM [Concomitant]
     Active Substance: ENOXAPARIN SODIUM
  3. LERCANIDIPINE HYDROCHLORIDE [Concomitant]
     Active Substance: LERCANIDIPINE HYDROCHLORIDE

REACTIONS (7)
  - Diplopia [Unknown]
  - Eyelid ptosis [Unknown]
  - Facial paralysis [Unknown]
  - Giant cell arteritis [Unknown]
  - IIIrd nerve paralysis [Unknown]
  - Systemic inflammatory response syndrome [Unknown]
  - Trigeminal neuralgia [Unknown]
